FAERS Safety Report 6861173-4 (Version None)
Quarter: 2010Q3

REPORT INFORMATION
  Report Type: 
  Country: None (occurrence: None)
  Receive Date: 20100720
  Receipt Date: 20100712
  Transmission Date: 20110219
  Serious: Yes (Other)
  Sender: FDA-Public Use
  Company Number: AU-PFIZER INC-2010087271

PATIENT
  Age: 40 Year
  Sex: Male
  Weight: 79.819 kg

DRUGS (3)
  1. LIPITOR [Suspect]
     Indication: HYPERLIPIDAEMIA
     Dosage: 20 MG, 1X/DAY
     Route: 048
  2. LEVOTHYROXINE SODIUM [Concomitant]
     Indication: HYPOTHYROIDISM
  3. ATENOLOL [Concomitant]

REACTIONS (4)
  - ARTHROSCOPIC SURGERY [None]
  - LIPIDS INCREASED [None]
  - MENISCUS LESION [None]
  - MUSCLE SPASMS [None]
